FAERS Safety Report 13711235 (Version 1)
Quarter: 2017Q3

REPORT INFORMATION
  Report Type: Spontaneous
  Country: SK (occurrence: SK)
  Receive Date: 20170703
  Receipt Date: 20170703
  Transmission Date: 20171127
  Serious: Yes (Other)
  Sender: FDA-Public Use
  Company Number: SK-MYLANLABS-2017M1039115

PATIENT

DRUGS (1)
  1. METFORMIN [Suspect]
     Active Substance: METFORMIN HYDROCHLORIDE
     Indication: TYPE 2 DIABETES MELLITUS
     Dosage: 500-850 MG

REACTIONS (2)
  - Diabetic metabolic decompensation [Unknown]
  - Diarrhoea [Unknown]

NARRATIVE: CASE EVENT DATE: 2014
